FAERS Safety Report 16141291 (Version 5)
Quarter: 2019Q2

REPORT INFORMATION
  Report Type: Spontaneous
  Country: US (occurrence: US)
  Receive Date: 20190401
  Receipt Date: 20190624
  Transmission Date: 20190711
  Serious: Yes (Other)
  Sender: FDA-Public Use
  Company Number: US-PFIZER INC-2019134258

PATIENT
  Age: 59 Year
  Sex: Female

DRUGS (1)
  1. XELJANZ [Suspect]
     Active Substance: TOFACITINIB CITRATE
     Indication: COLITIS ULCERATIVE
     Dosage: 10 MG, UNKNOWN FREQUENCY
     Route: 048
     Dates: start: 20190201

REACTIONS (21)
  - Gingival bleeding [Not Recovered/Not Resolved]
  - Respiratory syncytial virus infection [Unknown]
  - Oedema [Unknown]
  - Headache [Unknown]
  - Candida infection [Unknown]
  - Balance disorder [Unknown]
  - Arthralgia [Unknown]
  - Fungal oesophagitis [Unknown]
  - Epistaxis [Not Recovered/Not Resolved]
  - Arthritis fungal [Unknown]
  - Cough [Not Recovered/Not Resolved]
  - Arthropathy [Unknown]
  - Cognitive disorder [Unknown]
  - Peripheral swelling [Unknown]
  - Dizziness [Unknown]
  - Condition aggravated [Unknown]
  - Fibromyalgia [Unknown]
  - Skin disorder [Unknown]
  - Joint swelling [Unknown]
  - Diarrhoea [Unknown]
  - Flatulence [Unknown]

NARRATIVE: CASE EVENT DATE: 20190307
